FAERS Safety Report 15387608 (Version 2)
Quarter: 2018Q4

REPORT INFORMATION
  Report Type: Report from Study
  Country: US (occurrence: US)
  Receive Date: 20180914
  Receipt Date: 20181008
  Transmission Date: 20190204
  Serious: Yes (Hospitalization)
  Sender: FDA-Public Use
  Company Number: US-ACTELION-A-NJ2018-172265

PATIENT
  Age: 10 Month
  Sex: Male
  Weight: 3.63 kg

DRUGS (13)
  1. DIURIL [Concomitant]
     Active Substance: CHLOROTHIAZIDE
  2. ESOMEPRAZOLE. [Concomitant]
     Active Substance: ESOMEPRAZOLE MAGNESIUM
     Dosage: 10 MG, UNK
  3. BOSENTAN TABLET 32 MG PED US [Suspect]
     Active Substance: BOSENTAN
     Indication: PULMONARY HYPERTENSION
     Dosage: 16 MG, BID
     Route: 048
     Dates: start: 201802
  4. ATIVAN [Concomitant]
     Active Substance: LORAZEPAM
     Dosage: 10 MCG, UNK
     Dates: start: 20180424
  5. VITAMIN D3 [Concomitant]
     Active Substance: CHOLECALCIFEROL
  6. FERROUS SULFATE. [Concomitant]
     Active Substance: FERROUS SULFATE
     Dosage: 15 MG, BID
     Dates: start: 20180424
  7. AMOXICILLIN. [Concomitant]
     Active Substance: AMOXICILLIN
     Dosage: 5 MG/KG, QD
     Dates: start: 20180424
  8. LANSOPRAZOLE. [Concomitant]
     Active Substance: LANSOPRAZOLE
     Dosage: 7.5 MG, BID, PGT
     Dates: start: 20180424
  9. SPIRONOLACTONE. [Concomitant]
     Active Substance: SPIRONOLACTONE
     Dosage: 12.5 MG, Q12HRS
     Dates: start: 20180424
  10. LASIX [Concomitant]
     Active Substance: FUROSEMIDE
     Dosage: 12 MG, Q8H
  11. POTASSIUM CHLORIDE. [Concomitant]
     Active Substance: POTASSIUM CHLORIDE
     Dosage: 16.88 MEQ, BID, PJT
     Dates: start: 20180424
  12. ASA [Concomitant]
     Active Substance: ASPIRIN
     Dosage: 40.5 MG, Q12HRS
     Dates: start: 20180424
  13. CHLOROTHIAZIDE. [Concomitant]
     Active Substance: CHLOROTHIAZIDE
     Dosage: 400 U, QD
     Dates: start: 20180424

REACTIONS (10)
  - Hypoxia [Recovering/Resolving]
  - Feeding intolerance [Recovered/Resolved]
  - Respiratory distress [Recovered/Resolved]
  - Cardiac operation [Recovering/Resolving]
  - Pulmonary arterial hypertension [Recovered/Resolved]
  - Cardiovascular examination [Recovering/Resolving]
  - Pulmonary vascular disorder [Recovering/Resolving]
  - Reversal of sedation [Recovered/Resolved]
  - Dyspnoea [Recovered/Resolved]
  - Weight increased [Recovering/Resolving]

NARRATIVE: CASE EVENT DATE: 20180424
